FAERS Safety Report 9505364 (Version 1)
Quarter: 2013Q1

REPORT INFORMATION
  Report Type: Spontaneous
  Country: US (occurrence: None)
  Receive Date: 20130220
  Receipt Date: 20130220
  Transmission Date: 20140127
  Serious: No
  Sender: FDA-Public Use
  Company Number: 1000041936

PATIENT
  Age: 29 Year
  Sex: Male

DRUGS (2)
  1. VIIBRYD [Suspect]
     Indication: DEPRESSION
     Dosage: 10 MG (10 MG, 1 IN 1 D), ORAL
     Route: 048
     Dates: start: 201301, end: 201301
  2. LOVAZA (OMEGA -3-ACID ETHYL ESTER) (OMEGA -3-ACID ETHYL ESTER) [Concomitant]

REACTIONS (3)
  - Insomnia [None]
  - Dyspnoea [None]
  - Anxiety [None]
